FAERS Safety Report 5136964-0 (Version None)
Quarter: 2006Q4

REPORT INFORMATION
  Report Type: 
  Country: None (occurrence: None)
  Receive Date: 20061030
  Receipt Date: 20061023
  Transmission Date: 20070319
  Serious: Yes (Hospitalization)
  Sender: FDA-Public Use
  Company Number: JP-SP-2006-02793

PATIENT
  Age: 84 Year
  Sex: Male

DRUGS (4)
  1. IMMUCYST [Suspect]
     Indication: BLADDER CANCER
     Route: 043
     Dates: start: 20060329, end: 20060726
  2. IMMUCYST [Suspect]
     Route: 043
     Dates: start: 20060329, end: 20060726
  3. ISONIAZID [Concomitant]
     Route: 048
     Dates: start: 20060514, end: 20060530
  4. RIFAMPICIN [Concomitant]
     Route: 048

REACTIONS (2)
  - PYELONEPHRITIS [None]
  - PYREXIA [None]
